FAERS Safety Report 8054511-0 (Version None)
Quarter: 2012Q1

REPORT INFORMATION
  Report Type: 
  Country: None (occurrence: None)
  Receive Date: 20120118
  Receipt Date: 20120109
  Transmission Date: 20120608
  Serious: Yes (Other)
  Sender: FDA-Public Use
  Company Number: US-ASTRAZENECA-2011SE57713

PATIENT
  Age: 77 Year
  Sex: Female

DRUGS (8)
  1. VITAMIN B6 [Concomitant]
  2. SYNTHROID [Concomitant]
  3. DYAZIDE [Concomitant]
  4. NEURONTIN [Concomitant]
  5. VITAMIN D [Concomitant]
  6. NEXIUM [Suspect]
     Indication: GASTROOESOPHAGEAL REFLUX DISEASE
     Route: 048
  7. PRILOSEC [Suspect]
     Indication: GASTROOESOPHAGEAL REFLUX DISEASE
     Route: 048
  8. NORVASC [Concomitant]

REACTIONS (8)
  - INCREASED UPPER AIRWAY SECRETION [None]
  - OFF LABEL USE [None]
  - DYSPHONIA [None]
  - ADVERSE EVENT [None]
  - PAIN IN EXTREMITY [None]
  - GASTRIC HAEMORRHAGE [None]
  - NEUROPATHY PERIPHERAL [None]
  - DRUG INEFFECTIVE [None]
